FAERS Safety Report 9727582 (Version 2)
Quarter: 2013Q4

REPORT INFORMATION
  Report Type: Spontaneous
  Country: US (occurrence: US)
  Receive Date: 20131203
  Receipt Date: 20131227
  Transmission Date: 20140711
  Serious: Yes (Other)
  Sender: FDA-Public Use
  Company Number: US-PFIZER INC-2013340542

PATIENT
  Age: 56 Year
  Sex: Female
  Weight: 115.65 kg

DRUGS (10)
  1. XELJANZ [Suspect]
     Indication: RHEUMATOID ARTHRITIS
     Dosage: 5MG (2 TABLETS) DAILY/ (2 TABLETS EVERY DAY AS DIRECTED)
     Route: 048
  2. INDOMETHACIN [Concomitant]
     Dosage: 50 MG, UNK
  3. PRILOSEC [Concomitant]
     Dosage: 10 MG, UNK
  4. LASIX [Concomitant]
     Dosage: 20 MG, UNK
  5. POTASSIUM [Concomitant]
     Dosage: 95 MG, UNK
  6. SAVELLA [Concomitant]
     Dosage: 12.5 MG, UNK
  7. MEDROL [Concomitant]
     Dosage: 2 MG, UNK
  8. METHYLPRED PAK [Concomitant]
     Dosage: 4 MG, UNK
  9. DILAUDID [Concomitant]
     Dosage: 2 MG, UNK
  10. VITAMIN D [Concomitant]
     Dosage: 50000 IU, UNK

REACTIONS (4)
  - Pyrexia [Unknown]
  - Pain [Unknown]
  - Vitamin D deficiency [Unknown]
  - Weight decreased [Unknown]
